FAERS Safety Report 4553424-6 (Version None)
Quarter: 2005Q1

REPORT INFORMATION
  Report Type: 
  Country: None (occurrence: None)
  Receive Date: 20050112
  Receipt Date: 20041229
  Transmission Date: 20050727
  Serious: Yes (Death)
  Sender: FDA-Public Use
  Company Number: S04-GER-08303-01

PATIENT
  Sex: Female

DRUGS (3)
  1. CITALOPRAM HYDROBROMIDE [Suspect]
     Indication: APATHY
     Dosage: 40 MG QD PO
     Route: 048
     Dates: start: 20030101, end: 20030101
  2. CITALOPRAM HYDROBROMIDE [Suspect]
     Indication: APATHY
     Dosage: 20 MG QD PO
     Route: 048
     Dates: start: 20030101, end: 20030101
  3. CLOZAPINE [Suspect]
     Indication: SCHIZOAFFECTIVE DISORDER
     Dosage: 350 MG QD
     Dates: start: 20030701

REACTIONS (4)
  - DEPRESSED MOOD [None]
  - DRUG INTERACTION [None]
  - DRUG LEVEL INCREASED [None]
  - EMBOLISM [None]
